FAERS Safety Report 9469710 (Version 2)
Quarter: 2013Q3

REPORT INFORMATION
  Report Type: Spontaneous
  Country: BR (occurrence: BR)
  Receive Date: 20130822
  Receipt Date: 20130826
  Transmission Date: 20140515
  Serious: Yes (Other)
  Sender: FDA-Public Use
  Company Number: PHHY2013BR089472

PATIENT
  Sex: 0

DRUGS (2)
  1. LEPONEX [Suspect]
     Indication: SCHIZOPHRENIA
     Dosage: 3 DF, QD
     Route: 048
     Dates: start: 201208
  2. DEPAKOTE [Concomitant]
     Indication: CONVULSION
     Dosage: 1 DF, QD
     Route: 048
     Dates: start: 201204

REACTIONS (3)
  - Retrograde ejaculation [Not Recovered/Not Resolved]
  - Infertility [Unknown]
  - Weight increased [Unknown]
